FAERS Safety Report 6037043-0 (Version None)
Quarter: 2009Q1

REPORT INFORMATION
  Report Type: 
  Country: None (occurrence: None)
  Receive Date: 20090114
  Receipt Date: 20090107
  Transmission Date: 20090719
  Serious: Yes (Hospitalization, Disabling)
  Sender: FDA-Public Use
  Company Number: PHHO2008DE05961

PATIENT
  Sex: Male
  Weight: 90.1 kg

DRUGS (4)
  1. NEORAL [Suspect]
     Indication: RENAL TRANSPLANT
     Dosage: 70 MG, BID
     Route: 048
     Dates: start: 20080123
  2. RAD 666 RAD+TAB [Suspect]
     Indication: RENAL TRANSPLANT
     Dosage: 0.75 MG, BID
     Route: 048
     Dates: start: 20080423
  3. RAD 666 RAD+TAB [Suspect]
     Dosage: 0.5 MG, BID
     Route: 048
  4. URBASON [Concomitant]
     Indication: RENAL TRANSPLANT
     Dosage: 4 MG, QD
     Route: 048
     Dates: start: 20080123

REACTIONS (8)
  - LITHOTRIPSY [None]
  - LYMPHOCELE [None]
  - LYMPHOCELE MARSUPIALISATION [None]
  - NEPHRECTOMY [None]
  - NEPHROLITHIASIS [None]
  - OEDEMA PERIPHERAL [None]
  - RENAL STONE REMOVAL [None]
  - URINARY TRACT INFECTION [None]
